FAERS Safety Report 12104889 (Version 4)
Quarter: 2016Q3

REPORT INFORMATION
  Report Type: Spontaneous
  Country: US (occurrence: US)
  Receive Date: 20160223
  Receipt Date: 20160721
  Transmission Date: 20161109
  Serious: Yes (Other)
  Sender: FDA-Public Use
  Company Number: US-PFIZER INC-2016105696

PATIENT
  Age: 61 Year
  Sex: Female
  Weight: 48.98 kg

DRUGS (13)
  1. HYDROCORTISONE. [Concomitant]
     Active Substance: HYDROCORTISONE
     Dosage: 10MG 2 TABLETS ONCE A DAY
     Route: 048
  2. RECLAST [Concomitant]
     Active Substance: ZOLEDRONIC ACID
     Indication: OSTEOPOROSIS
     Dosage: UNK
     Dates: start: 2014
  3. AMOXICILLIN. [Concomitant]
     Active Substance: AMOXICILLIN
  4. XELJANZ [Suspect]
     Active Substance: TOFACITINIB CITRATE
     Indication: RHEUMATOID ARTHRITIS
     Dosage: 5 MG, 2X/DAY
     Route: 048
     Dates: start: 201512, end: 201605
  5. LEVOTHYROXINE. [Concomitant]
     Active Substance: LEVOTHYROXINE
     Dosage: UNK
  6. AMLODIPINE [Concomitant]
     Active Substance: AMLODIPINE BESYLATE
  7. XELJANZ [Suspect]
     Active Substance: TOFACITINIB CITRATE
     Indication: POLYARTHRITIS
  8. LEUCOVORIN. [Concomitant]
     Active Substance: LEUCOVORIN
  9. METHOTREXATE. [Concomitant]
     Active Substance: METHOTREXATE
  10. DESMOPRESSIN [Concomitant]
     Active Substance: DESMOPRESSIN
     Indication: DIABETES INSIPIDUS
     Dosage: 0.1 MG, 1X/DAY
     Route: 048
  11. POTASSIUM [Concomitant]
     Active Substance: POTASSIUM
  12. ARAVA [Concomitant]
     Active Substance: LEFLUNOMIDE
     Indication: POLYARTHRITIS
     Dosage: 20 MG, 1X/DAY
     Route: 048
     Dates: start: 201512
  13. AZULFIDINE [Concomitant]
     Active Substance: SULFASALAZINE

REACTIONS (3)
  - Intracranial pressure increased [Unknown]
  - Pituitary enlargement [Unknown]
  - Headache [Not Recovered/Not Resolved]

NARRATIVE: CASE EVENT DATE: 20160214
